FAERS Safety Report 11237317 (Version 1)
Quarter: 2015Q3

REPORT INFORMATION
  Report Type: Spontaneous
  Country: PT (occurrence: PT)
  Receive Date: 20150703
  Receipt Date: 20150703
  Transmission Date: 20151125
  Serious: Yes (Hospitalization)
  Sender: FDA-Public Use
  Company Number: PT-ACCORD-031806

PATIENT
  Age: 89 Year
  Sex: Male

DRUGS (3)
  1. VILDAGLIPTIN [Concomitant]
     Active Substance: VILDAGLIPTIN
  2. METFORMIN [Concomitant]
     Active Substance: METFORMIN HYDROCHLORIDE
  3. DONEPEZIL/DONEPEZIL HYDROCHLORIDE [Suspect]
     Active Substance: DONEPEZIL HYDROCHLORIDE
     Indication: PRODUCT USED FOR UNKNOWN INDICATION

REACTIONS (1)
  - Cerebral salt-wasting syndrome [Unknown]
